FAERS Safety Report 9678777 (Version 2)
Quarter: 2013Q4

REPORT INFORMATION
  Report Type: Report from Study
  Country: PR (occurrence: PR)
  Receive Date: 20131108
  Receipt Date: 20131108
  Transmission Date: 20140711
  Serious: Yes (Life-Threatening, Hospitalization, Other)
  Sender: FDA-Public Use
  Company Number: PR-ABBVIE-12P-131-0991214-00

PATIENT
  Age: 53 Year
  Sex: Female
  Weight: 56.75 kg

DRUGS (12)
  1. HUMIRA [Suspect]
     Indication: CROHN^S DISEASE
     Route: 058
     Dates: start: 201207, end: 201211
  2. PENTASA [Concomitant]
     Indication: CROHN^S DISEASE
     Route: 048
     Dates: start: 201303
  3. PENTASA [Concomitant]
  4. IMURAN [Concomitant]
     Indication: CROHN^S DISEASE
     Dosage: DAILY
     Route: 048
     Dates: start: 201202
  5. ENTOCORT [Concomitant]
     Indication: CROHN^S DISEASE
     Dosage: DAILY
     Route: 048
     Dates: start: 201202, end: 201209
  6. PROBIOTIC [Concomitant]
     Indication: CROHN^S DISEASE
     Dosage: DAILY
     Route: 048
     Dates: start: 201202, end: 201209
  7. FOLIC ACID [Concomitant]
     Indication: VITAMIN SUPPLEMENTATION
     Route: 048
     Dates: start: 201303
  8. VITAMIN CELL [Concomitant]
     Indication: VITAMIN SUPPLEMENTATION
     Route: 048
  9. CALCIUM [Concomitant]
     Indication: MINERAL SUPPLEMENTATION
  10. PROBIOTIC [Concomitant]
     Indication: SUPPLEMENTATION THERAPY
     Route: 048
     Dates: start: 2011
  11. VITAMIN B COMPLEX [Concomitant]
     Indication: VITAMIN SUPPLEMENTATION
     Route: 048
     Dates: start: 201306
  12. OMEGA 3 [Concomitant]
     Indication: SUPPLEMENTATION THERAPY
     Route: 058
     Dates: start: 201310

REACTIONS (8)
  - Gastrointestinal inflammation [Recovering/Resolving]
  - Vomiting [Recovered/Resolved]
  - Ileostomy [Recovered/Resolved]
  - Hysterosalpingo-oophorectomy [Recovered/Resolved]
  - Intestinal resection [Recovered/Resolved]
  - Ileostomy closure [Recovered/Resolved]
  - Alopecia [Recovered/Resolved]
  - Hypoaesthesia [Not Recovered/Not Resolved]
